FAERS Safety Report 6084350-1 (Version None)
Quarter: 2009Q1

REPORT INFORMATION
  Report Type: 
  Country: None (occurrence: None)
  Receive Date: 20090217
  Receipt Date: 20090205
  Transmission Date: 20090719
  Serious: Yes (Disabling)
  Sender: FDA-Public Use
  Company Number: 2009AL000806

PATIENT
  Age: 50 Year
  Sex: Female

DRUGS (9)
  1. PROPRANOLOL HCL EXTENDED-RELEASE CAPSULES USP, 60MG (AELLC) (PROPRANOL [Suspect]
     Indication: ANXIETY
     Dosage: 40 MG;TID;PO
     Route: 048
     Dates: start: 20090112
  2. ZOPICLONE [Concomitant]
  3. DIAZEPAM [Concomitant]
  4. PHENERGAN [Concomitant]
  5. ESCITALOPRAM [Concomitant]
  6. AMITRIPTYLINE [Concomitant]
  7. TRAMADOL HCL [Concomitant]
  8. PARACETAMOL [Concomitant]
  9. CLOTRIMAZOLE [Concomitant]

REACTIONS (3)
  - HYPOAESTHESIA [None]
  - MENTAL DISORDER [None]
  - RESTLESS LEGS SYNDROME [None]
